FAERS Safety Report 5365152-8 (Version None)
Quarter: 2007Q2

REPORT INFORMATION
  Report Type: 
  Country: None (occurrence: None)
  Receive Date: 20070530
  Receipt Date: 20070124
  Transmission Date: 20071010
  Serious: No
  Sender: FDA-Public Use
  Company Number: 2006PV018235

PATIENT
  Age: 77 Year
  Sex: Male
  Weight: 87.5442 kg

DRUGS (9)
  1. BYETTA [Suspect]
     Indication: DIABETES MELLITUS NON-INSULIN-DEPENDENT
     Dosage: 5 MCG; BID; SC; 10 MCG;BID;SC; 5 MCG; BID; SC; 10 MCG;BID;SC; 5 MCG;BID;SC
     Route: 058
     Dates: start: 20060601, end: 20060701
  2. BYETTA [Suspect]
     Indication: DIABETES MELLITUS NON-INSULIN-DEPENDENT
     Dosage: 5 MCG; BID; SC; 10 MCG;BID;SC; 5 MCG; BID; SC; 10 MCG;BID;SC; 5 MCG;BID;SC
     Route: 058
     Dates: start: 20060701, end: 20060701
  3. BYETTA [Suspect]
     Indication: DIABETES MELLITUS NON-INSULIN-DEPENDENT
     Dosage: 5 MCG; BID; SC; 10 MCG;BID;SC; 5 MCG; BID; SC; 10 MCG;BID;SC; 5 MCG;BID;SC
     Route: 058
     Dates: start: 20060101, end: 20070101
  4. BYETTA [Suspect]
     Indication: DIABETES MELLITUS NON-INSULIN-DEPENDENT
     Dosage: 5 MCG; BID; SC; 10 MCG;BID;SC; 5 MCG; BID; SC; 10 MCG;BID;SC; 5 MCG;BID;SC
     Route: 058
     Dates: start: 20060701
  5. HUMALOG [Concomitant]
  6. LEVENIR [Concomitant]
  7. DIABETIC PILL NOS [Concomitant]
  8. LANTUS [Concomitant]
  9. HUMALOG [Concomitant]

REACTIONS (6)
  - ABNORMAL FAECES [None]
  - ANOREXIA [None]
  - CONSTIPATION [None]
  - EARLY SATIETY [None]
  - VOMITING [None]
  - WEIGHT DECREASED [None]
